FAERS Safety Report 10720219 (Version 2)
Quarter: 2015Q2

REPORT INFORMATION
  Report Type: Spontaneous
  Country: JP (occurrence: JP)
  Receive Date: 20150119
  Receipt Date: 20150430
  Transmission Date: 20150821
  Serious: Yes (Hospitalization)
  Sender: FDA-Public Use
  Company Number: JP-AMGEN-JPNSP2015004408

PATIENT
  Age: 71 Year
  Sex: Male

DRUGS (4)
  1. RANMARK [Suspect]
     Active Substance: DENOSUMAB
     Indication: METASTASES TO BONE
     Dosage: 120 MG, UNK
     Route: 058
     Dates: start: 201207, end: 201407
  2. CARBOPLATIN. [Concomitant]
     Active Substance: CARBOPLATIN
     Dosage: UNK
     Route: 065
  3. RANMARK [Suspect]
     Active Substance: DENOSUMAB
     Indication: PROSTATE CANCER
  4. TAXOTERE [Concomitant]
     Active Substance: DOCETAXEL
     Dosage: UNK
     Route: 065

REACTIONS (3)
  - Pyrexia [Recovered/Resolved]
  - Decreased appetite [Recovered/Resolved]
  - Osteonecrosis of jaw [Recovered/Resolved]

NARRATIVE: CASE EVENT DATE: 201407
